APPROVED DRUG PRODUCT: ACIPHEX
Active Ingredient: RABEPRAZOLE SODIUM
Strength: 20MG
Dosage Form/Route: TABLET, DELAYED RELEASE;ORAL
Application: N020973 | Product #002 | TE Code: AB
Applicant: WAYLIS THERAPEUTICS LLC
Approved: Aug 19, 1999 | RLD: Yes | RS: Yes | Type: RX